FAERS Safety Report 7595950-1 (Version None)
Quarter: 2011Q3

REPORT INFORMATION
  Report Type: 
  Country: None (occurrence: None)
  Receive Date: 20110707
  Receipt Date: 20110624
  Transmission Date: 20111222
  Serious: Yes (Other)
  Sender: FDA-Public Use
  Company Number: PHHY2010MX51929

PATIENT
  Age: 84 Year
  Sex: Female

DRUGS (4)
  1. DEBRIDAT [Concomitant]
     Dosage: UNK
  2. DIOVAN HCT [Suspect]
     Dosage: 1 TABLET (160/12.5MG) DAILY
     Dates: start: 20110501
  3. CLONAZEPAM [Concomitant]
  4. DIOVAN HCT [Suspect]
     Indication: HYPERTENSION
     Dosage: 1 TABLET (80/12.5 MG) DAILY
     Route: 048
     Dates: start: 20090601

REACTIONS (6)
  - CARDIAC DISORDER [None]
  - BLOOD PRESSURE INCREASED [None]
  - HEADACHE [None]
  - MALAISE [None]
  - PALPITATIONS [None]
  - BLOOD PRESSURE DECREASED [None]
